FAERS Safety Report 14553081 (Version 1)
Quarter: 2018Q1

REPORT INFORMATION
  Report Type: Spontaneous
  Country: US (occurrence: US)
  Receive Date: 20180216
  Receipt Date: 20180216
  Transmission Date: 20180509
  Serious: Yes (Hospitalization, Disabling)
  Sender: FDA-Public Use
  Company Number: None

PATIENT
  Age: 29 Year
  Sex: Female
  Weight: 74.84 kg

DRUGS (2)
  1. TYLENOL [Concomitant]
     Active Substance: ACETAMINOPHEN
  2. MIRENA [Suspect]
     Active Substance: LEVONORGESTREL
     Dates: start: 20170715, end: 20180215

REACTIONS (2)
  - Muscle spasms [None]
  - Device dislocation [None]

NARRATIVE: CASE EVENT DATE: 20180214
